FAERS Safety Report 7648487-5 (Version None)
Quarter: 2011Q3

REPORT INFORMATION
  Report Type: 
  Country: None (occurrence: None)
  Receive Date: 20110801
  Receipt Date: 20110726
  Transmission Date: 20111222
  Serious: Yes (Hospitalization, Other)
  Sender: FDA-Public Use
  Company Number: MY-ABBOTT-11P-101-0730735-00

PATIENT
  Sex: Male
  Weight: 98 kg

DRUGS (9)
  1. PERINDOPRIL [Concomitant]
     Indication: PRODUCT USED FOR UNKNOWN INDICATION
  2. VITAMIN B-CO [Concomitant]
     Indication: PRODUCT USED FOR UNKNOWN INDICATION
  3. METHOTREXATE [Concomitant]
     Indication: PRODUCT USED FOR UNKNOWN INDICATION
     Dosage: FRIDAY
     Dates: start: 20050525, end: 20110316
  4. METFORMIN HCL [Concomitant]
     Indication: PRODUCT USED FOR UNKNOWN INDICATION
  5. GLICLAZIDE MR [Concomitant]
     Indication: PRODUCT USED FOR UNKNOWN INDICATION
  6. HUMIRA [Suspect]
     Indication: RHEUMATOID ARTHRITIS
     Dosage: FORTNIGHTLY
     Route: 050
     Dates: start: 20071030, end: 20110316
  7. FOLIC ACID [Concomitant]
     Indication: PRODUCT USED FOR UNKNOWN INDICATION
  8. CELEBREX [Concomitant]
     Indication: PRODUCT USED FOR UNKNOWN INDICATION
  9. ASCORBIC ACID [Concomitant]
     Indication: PRODUCT USED FOR UNKNOWN INDICATION

REACTIONS (12)
  - JOINT INSTABILITY [None]
  - URINARY RETENTION [None]
  - CONSTIPATION [None]
  - DUODENITIS [None]
  - VERTEBRAL COLUMN MASS [None]
  - B-CELL LYMPHOMA [None]
  - SPINAL CORD COMPRESSION [None]
  - MUSCULAR WEAKNESS [None]
  - FALL [None]
  - OSTEOARTHRITIS [None]
  - HYPOAESTHESIA [None]
  - BENIGN PROSTATIC HYPERPLASIA [None]
